FAERS Safety Report 4491049-1 (Version None)
Quarter: 2004Q4

REPORT INFORMATION
  Report Type: 
  Country: None (occurrence: None)
  Receive Date: 20041102
  Receipt Date: 20041001
  Transmission Date: 20050328
  Serious: Yes (Hospitalization)
  Sender: FDA-Public Use
  Company Number: AT-MERCK-0410AUT00009

PATIENT
  Sex: Male

DRUGS (2)
  1. VIOXX [Suspect]
     Indication: PAIN
     Route: 048
     Dates: start: 20040101
  2. VIOXX [Suspect]
     Indication: TOOTHACHE
     Route: 048
     Dates: start: 20040101

REACTIONS (1)
  - ACUTE MYOCARDIAL INFARCTION [None]
